FAERS Safety Report 4892630-8 (Version None)
Quarter: 2006Q1

REPORT INFORMATION
  Report Type: 
  Country: None (occurrence: None)
  Receive Date: 20060126
  Receipt Date: 20060125
  Transmission Date: 20060701
  Serious: Yes (Other)
  Sender: FDA-Public Use
  Company Number: 200417797GDDC

PATIENT
  Age: 47 Year
  Sex: Male
  Weight: 100 kg

DRUGS (10)
  1. NICORETTE [Suspect]
     Dosage: 1GUM SEE DOSAGE TEXT
     Route: 002
     Dates: start: 19970101
  2. CRESTOR [Concomitant]
     Dosage: 10MG PER DAY
     Dates: start: 20050101
  3. MICARDIS [Concomitant]
     Dosage: 80MG PER DAY
     Dates: start: 20050101
  4. ASPIRIN [Concomitant]
     Dosage: 325MG PER DAY
     Dates: start: 20040101
  5. APO-ALLOPURINOL [Concomitant]
     Dosage: 200MG PER DAY
  6. NAPROSYN [Concomitant]
     Indication: ARTHRITIS
     Dosage: 500MG PER DAY
     Dates: start: 20040101
  7. GLUCOSAMINE SULFATE [Concomitant]
     Indication: ARTHRITIS
     Dosage: 500MG PER DAY
     Dates: start: 20050501
  8. FOLIC ACID [Concomitant]
     Dosage: 1MG PER DAY
     Dates: start: 20050701
  9. FISH OIL [Concomitant]
     Dates: start: 20050701
  10. COUMADIN [Concomitant]
     Dates: start: 20051001, end: 20051201

REACTIONS (3)
  - DEPENDENCE [None]
  - MEDICATION ERROR [None]
  - OVERDOSE [None]
